FAERS Safety Report 14597666 (Version 2)
Quarter: 2018Q2

REPORT INFORMATION
  Report Type: Report from Study
  Country: US (occurrence: US)
  Receive Date: 20180305
  Receipt Date: 20180405
  Transmission Date: 20180711
  Serious: Yes (Hospitalization)
  Sender: FDA-Public Use
  Company Number: US-ROCHE-2077705

PATIENT
  Sex: Female
  Weight: 68.1 kg

DRUGS (5)
  1. ESBRIET [Suspect]
     Active Substance: PIRFENIDONE
     Indication: IDIOPATHIC PULMONARY FIBROSIS
     Dosage: 3 CAPSULES WITH EACH MEAL 3 TIMES PER DAY ;ONGOING: YES
     Route: 048
     Dates: start: 2017, end: 201803
  2. PROAIR HFA [Concomitant]
     Active Substance: ALBUTEROL SULFATE
  3. PREDNISONE. [Concomitant]
     Active Substance: PREDNISONE
     Route: 065
  4. ASPIRIN. [Concomitant]
     Active Substance: ASPIRIN
  5. FLONASE [Concomitant]
     Active Substance: FLUTICASONE PROPIONATE
     Route: 045

REACTIONS (5)
  - Dysphagia [Unknown]
  - Oesophageal disorder [Unknown]
  - Aspiration [Unknown]
  - Choking [Recovered/Resolved]
  - Cough [Unknown]

NARRATIVE: CASE EVENT DATE: 2017
